FAERS Safety Report 7774309-8 (Version None)
Quarter: 2011Q3

REPORT INFORMATION
  Report Type: 
  Country: None (occurrence: None)
  Receive Date: 20110921
  Receipt Date: 20110606
  Transmission Date: 20111222
  Serious: Yes (Other)
  Sender: FDA-Public Use
  Company Number: UTC-007672

PATIENT
  Age: 42 Year
  Sex: Male
  Weight: 70.9 kg

DRUGS (2)
  1. TYVASO [Suspect]
     Indication: PULMONARY ARTERIAL HYPERTENSION
     Dosage: 108 MCG (27 MCG, 4 IN 1 D), INHALATION
     Route: 055
     Dates: start: 20100927
  2. DIURETICS (DIURETICS) [Concomitant]

REACTIONS (1)
  - CONVULSION [None]
